FAERS Safety Report 16336529 (Version 1)
Quarter: 2019Q2

REPORT INFORMATION
  Report Type: Spontaneous
  Country: US (occurrence: US)
  Receive Date: 20190415
  Receipt Date: 20190415
  Transmission Date: 20190711
  Serious: Yes (Hospitalization)
  Sender: FDA-Public Use
  Company Number: None

PATIENT
  Age: 41 Year
  Sex: Male
  Weight: 102.06 kg

DRUGS (6)
  1. BUPROPION. [Concomitant]
     Active Substance: BUPROPION
  2. NICOTINE POLACRILEX [Concomitant]
     Active Substance: NICOTINE
  3. BUPRENORPHINE-NALOXONE [Concomitant]
     Active Substance: BUPRENORPHINE HYDROCHLORIDE\NALOXONE HYDROCHLORIDE
  4. CLONIDINE. [Concomitant]
     Active Substance: CLONIDINE
  5. MAVYRET [Suspect]
     Active Substance: GLECAPREVIR\PIBRENTASVIR
     Indication: HEPATITIS C
     Dosage: ?          OTHER DOSE:100/40;?
     Route: 048
     Dates: start: 20181002, end: 20181127
  6. QUETIAPINE. [Concomitant]
     Active Substance: QUETIAPINE

REACTIONS (7)
  - Lymphadenopathy [None]
  - Acute kidney injury [None]
  - Rheumatic disorder [None]
  - Autoimmune disorder [None]
  - Rhabdomyolysis [None]
  - Inflammation [None]
  - Lymphoma [None]

NARRATIVE: CASE EVENT DATE: 20181227
